FAERS Safety Report 20674414 (Version 1)
Quarter: 2022Q2

REPORT INFORMATION
  Report Type: Spontaneous
  Country: CN (occurrence: CN)
  Receive Date: 20220405
  Receipt Date: 20220405
  Transmission Date: 20220720
  Serious: Yes (Hospitalization, Other)
  Sender: FDA-Public Use
  Company Number: CN-PFIZER INC-202200468917

PATIENT
  Age: 29 Year
  Sex: Female
  Weight: 62 kg

DRUGS (1)
  1. MEDROL [Suspect]
     Active Substance: METHYLPREDNISOLONE
     Indication: Systemic lupus erythematosus
     Dosage: 9 MG, 1X/DAY
     Route: 048
     Dates: start: 20220127, end: 20220304

REACTIONS (6)
  - Amenorrhoea [Unknown]
  - Uterine atrophy [Unknown]
  - Endometrial disorder [Unknown]
  - Endocrine disorder [Unknown]
  - Blood follicle stimulating hormone increased [Unknown]
  - Blood luteinising hormone increased [Unknown]

NARRATIVE: CASE EVENT DATE: 20220301
